FAERS Safety Report 19205585 (Version 2)
Quarter: 2021Q3

REPORT INFORMATION
  Report Type: Spontaneous
  Country: US (occurrence: US)
  Receive Date: 20210503
  Receipt Date: 20210908
  Transmission Date: 20211014
  Serious: No
  Sender: FDA-Public Use
  Company Number: US-FARMAPROD-202104-0489

PATIENT
  Age: 66 Year
  Sex: Female

DRUGS (17)
  1. OXERVATE [Suspect]
     Active Substance: CENEGERMIN-BKBJ
     Dates: start: 20210414
  2. VITAMIN D2 [Concomitant]
     Active Substance: ERGOCALCIFEROL
  3. PREDNISOLONE/NEPAFENAC [Concomitant]
  4. VITAMIN E [Concomitant]
     Active Substance: .ALPHA.-TOCOPHEROL
  5. PREDNISOLONE ACETATE. [Concomitant]
     Active Substance: PREDNISOLONE ACETATE
     Route: 047
     Dates: start: 20210326, end: 20210414
  6. OXERVATE [Suspect]
     Active Substance: CENEGERMIN-BKBJ
     Indication: KERATITIS
     Route: 047
     Dates: start: 20210225, end: 20210326
  7. VITAMINE C [Concomitant]
     Active Substance: ASCORBIC ACID
  8. TRIFLURIDINE. [Concomitant]
     Active Substance: TRIFLURIDINE
     Dates: start: 20210329, end: 20210402
  9. VALTREX [Concomitant]
     Active Substance: VALACYCLOVIR HYDROCHLORIDE
     Route: 048
  10. OFLOXACIN. [Concomitant]
     Active Substance: OFLOXACIN
     Dates: start: 20210326, end: 20210329
  11. TRIFLURIDINE. [Concomitant]
     Active Substance: TRIFLURIDINE
     Dates: start: 20210402, end: 20210406
  12. VITAMINE A [Concomitant]
     Active Substance: RETINOL
  13. METFORMIN [Concomitant]
     Active Substance: METFORMIN HYDROCHLORIDE
     Dosage: EXTENDED RELEASE GASTRIC
  14. LISINOPRIL. [Concomitant]
     Active Substance: LISINOPRIL
  15. VALACICLOVIR HYDROCHLORIDE [Concomitant]
     Active Substance: VALACYCLOVIR HYDROCHLORIDE
  16. ARTIFICIAL TEARS [Concomitant]
     Active Substance: GLYCERIN\HYPROMELLOSES\POLYETHYLENE GLYCOL 400
  17. ATORVASTATIN CALCIUM. [Concomitant]
     Active Substance: ATORVASTATIN CALCIUM

REACTIONS (1)
  - Herpes zoster [Recovering/Resolving]

NARRATIVE: CASE EVENT DATE: 20210225
